FAERS Safety Report 7551865-6 (Version None)
Quarter: 2011Q2

REPORT INFORMATION
  Report Type: 
  Country: None (occurrence: None)
  Receive Date: 20110616
  Receipt Date: 20110609
  Transmission Date: 20111010
  Serious: Yes (Other)
  Sender: FDA-Public Use
  Company Number: PHHY2011GB50124

PATIENT
  Age: 19 Year
  Sex: Female
  Weight: 50 kg

DRUGS (1)
  1. SOMATROPIN RDNA [Suspect]
     Indication: GROWTH HORMONE DEFICIENCY
     Dosage: 0.3 MG, QD
     Route: 058
     Dates: start: 20100601

REACTIONS (1)
  - ANXIETY [None]
